FAERS Safety Report 23871325 (Version 4)
Quarter: 2024Q2

REPORT INFORMATION
  Report Type: Spontaneous
  Country: ES (occurrence: ES)
  Receive Date: 20240519
  Receipt Date: 20240603
  Transmission Date: 20240715
  Serious: Yes (Life-Threatening, Hospitalization, Other)
  Sender: FDA-Public Use
  Company Number: ES-OTSUKA-2024_007425

PATIENT
  Age: 16 Year
  Sex: Female

DRUGS (16)
  1. ARIPIPRAZOLE [Suspect]
     Active Substance: ARIPIPRAZOLE
     Indication: Trisomy 21
     Dosage: 5 MILLIGRAM, ONCE A DAY
     Route: 048
     Dates: start: 2021
  2. ARIPIPRAZOLE [Suspect]
     Active Substance: ARIPIPRAZOLE
     Indication: Antipsychotic therapy
  3. FLUOXETINE [Suspect]
     Active Substance: FLUOXETINE HYDROCHLORIDE
     Indication: Trisomy 21
     Dosage: 20 MILLIGRAM
     Route: 065
  4. FLUOXETINE [Suspect]
     Active Substance: FLUOXETINE HYDROCHLORIDE
     Indication: Antipsychotic therapy
     Dosage: 40 MILLIGRAM, ONCE A DAY
     Route: 048
     Dates: start: 2021
  5. FLUOXETINE [Suspect]
     Active Substance: FLUOXETINE HYDROCHLORIDE
     Indication: Mental disorder
  6. SERTRALINE [Suspect]
     Active Substance: SERTRALINE HYDROCHLORIDE
     Indication: Trisomy 21
     Dosage: 100 MILLIGRAM, DAILY
     Route: 048
     Dates: start: 2021
  7. SERTRALINE [Suspect]
     Active Substance: SERTRALINE HYDROCHLORIDE
     Indication: Mental disorder
  8. ATROPINE [Suspect]
     Active Substance: ATROPINE\ATROPINE SULFATE
     Indication: Extrasystoles
     Dosage: 0.5 MILLIGRAM
     Route: 065
     Dates: start: 2023
  9. LORAZEPAM [Suspect]
     Active Substance: LORAZEPAM
     Indication: Obstructive sleep apnoea syndrome
     Dosage: 15 MILLIGRAM, ONCE A DAY
     Route: 065
     Dates: start: 2021
  10. LORAZEPAM [Suspect]
     Active Substance: LORAZEPAM
     Indication: Trisomy 21
     Dosage: 2 MILLIGRAM, ONCE A DAY
     Route: 065
     Dates: start: 2021
  11. LORAZEPAM [Suspect]
     Active Substance: LORAZEPAM
     Indication: Antipsychotic therapy
     Dosage: 6 MILLIGRAM, ONCE A DAY (6 MG, QD)
     Route: 065
     Dates: start: 2021
  12. LORAZEPAM [Suspect]
     Active Substance: LORAZEPAM
     Dosage: 1 MILLIGRAM, ONCE A DAY (1 MG, QD)
     Route: 065
     Dates: start: 2021
  13. PROPOFOL [Concomitant]
     Active Substance: PROPOFOL
     Indication: Induction of anaesthesia
     Dosage: UNK
     Route: 065
  14. SUCCINYLCHOLINE [Concomitant]
     Active Substance: SUCCINYLCHOLINE
     Indication: Muscle relaxant therapy
     Dosage: UNK
     Route: 065
  15. THIOPENTAL [Concomitant]
     Active Substance: THIOPENTAL
     Indication: Induction of anaesthesia
     Dosage: UNK
     Route: 065
  16. CLOMIPRAMINE [Concomitant]
     Active Substance: CLOMIPRAMINE
     Indication: Mental disorder
     Dosage: 35 MILLIGRAM, ONCE A DAY (35 MG, QD( 35 MG (25 + 10) A DAY WAS STARTED))
     Route: 065

REACTIONS (12)
  - Hypertensive crisis [Unknown]
  - Respiratory failure [Unknown]
  - Acute pulmonary oedema [Unknown]
  - Hyperhidrosis [Recovered/Resolved]
  - Hypersomnia [Recovered/Resolved]
  - Stress cardiomyopathy [Recovered/Resolved]
  - Extrapyramidal disorder [Recovered/Resolved]
  - Therapy non-responder [Unknown]
  - Off label use [Unknown]
  - Drug ineffective [Unknown]
  - Catatonia [Unknown]
  - Drug ineffective for unapproved indication [Unknown]

NARRATIVE: CASE EVENT DATE: 20230101
